FAERS Safety Report 9397953 (Version 1)
Quarter: 2013Q3

REPORT INFORMATION
  Report Type: Report from Study
  Country: US (occurrence: US)
  Receive Date: 20130712
  Receipt Date: 20130712
  Transmission Date: 20140515
  Serious: Yes (Hospitalization)
  Sender: FDA-Public Use
  Company Number: US-JNJFOC-20130620339

PATIENT
  Age: 86 Year
  Sex: Male
  Weight: 57.15 kg

DRUGS (12)
  1. ZYTIGA [Suspect]
     Indication: PROSTATE CANCER
     Route: 048
     Dates: start: 201304, end: 20130621
  2. PREDNISONE [Concomitant]
     Indication: PAIN
     Route: 048
     Dates: start: 201306
  3. ZOFRAN [Concomitant]
     Route: 048
  4. LISINOPRIL [Concomitant]
     Indication: BLOOD PRESSURE
     Route: 048
  5. FENTANYL [Concomitant]
     Indication: PAIN
     Route: 062
  6. FENTANYL [Concomitant]
     Indication: PAIN
     Route: 062
     Dates: start: 201305
  7. MIRALAX [Concomitant]
     Route: 065
  8. DEXAMETHASONE [Concomitant]
     Route: 048
     Dates: start: 201306
  9. PEPCID [Concomitant]
     Indication: ABDOMINAL DISCOMFORT
     Route: 048
  10. HYDROMORPHONE [Concomitant]
     Indication: PAIN
     Route: 065
     Dates: start: 201306
  11. FAMOTIDINE [Concomitant]
     Indication: ABDOMINAL PAIN UPPER
     Route: 048
     Dates: start: 201306
  12. NAPROXEN [Concomitant]
     Route: 048
     Dates: start: 201306

REACTIONS (3)
  - Pain [Not Recovered/Not Resolved]
  - Prostatic specific antigen increased [Not Recovered/Not Resolved]
  - Drug ineffective [Not Recovered/Not Resolved]
